FAERS Safety Report 12427434 (Version 1)
Quarter: 2016Q2

REPORT INFORMATION
  Report Type: Spontaneous
  Country: CA (occurrence: CA)
  Receive Date: 20160602
  Receipt Date: 20160602
  Transmission Date: 20160815
  Serious: Yes (Hospitalization, Other)
  Sender: FDA-Public Use
  Company Number: CA-ROCHE-1765286

PATIENT
  Age: 44 Year
  Sex: Female

DRUGS (1)
  1. XOLAIR [Suspect]
     Active Substance: OMALIZUMAB
     Indication: ASTHMA
     Dosage: 150 MG, Q4 WEEKS
     Route: 058
     Dates: start: 20150807

REACTIONS (4)
  - General physical condition abnormal [Unknown]
  - Influenza [Unknown]
  - Cervical vertebral fracture [Unknown]
  - Back pain [Unknown]

NARRATIVE: CASE EVENT DATE: 201603
